FAERS Safety Report 5761915-5 (Version None)
Quarter: 2008Q2

REPORT INFORMATION
  Report Type: 
  Country: None (occurrence: None)
  Receive Date: 20080606
  Receipt Date: 20080522
  Transmission Date: 20081010
  Serious: Yes (Hospitalization)
  Sender: FDA-Public Use
  Company Number: FR-GENENTECH-261976

PATIENT
  Age: 58 Year
  Sex: Female

DRUGS (7)
  1. BEVACIZUMAB [Suspect]
     Indication: METASTATIC RENAL CELL CARCINOMA
     Dosage: 10 MG/KG, Q2W
     Route: 042
  2. INTERFERON ALFA 2A [Suspect]
     Indication: METASTATIC RENAL CELL CARCINOMA
  3. SKENAN [Suspect]
     Indication: DRUG USE FOR UNKNOWN INDICATION
  4. ACTISKENAN [Suspect]
     Indication: DRUG USE FOR UNKNOWN INDICATION
  5. INNOHEP [Concomitant]
     Indication: DRUG USE FOR UNKNOWN INDICATION
  6. LOSARTAN POTASSIUM AND HYDROCHLOROTHIAZIDE [Concomitant]
     Indication: DRUG USE FOR UNKNOWN INDICATION
  7. LYRICA [Concomitant]
     Indication: DRUG USE FOR UNKNOWN INDICATION

REACTIONS (2)
  - ASTHENIA [None]
  - PYREXIA [None]
